FAERS Safety Report 6967478-0 (Version None)
Quarter: 2010Q3

REPORT INFORMATION
  Report Type: 
  Country: None (occurrence: None)
  Receive Date: 20100907
  Receipt Date: 20100831
  Transmission Date: 20110219
  Serious: Yes (Hospitalization, Other)
  Sender: FDA-Public Use
  Company Number: US-ELI_LILLY_AND_COMPANY-US201009000492

PATIENT
  Sex: Male
  Weight: 104.31 kg

DRUGS (11)
  1. BYETTA [Suspect]
     Indication: TYPE 2 DIABETES MELLITUS
     Dosage: 5 UG, 2/D
     Route: 058
  2. BYETTA [Suspect]
     Dosage: 10 UG, 2/D
     Route: 058
  3. BYETTA [Suspect]
     Dosage: 10 UG, 2/D
     Route: 058
  4. METFORMIN [Concomitant]
     Dosage: 1000 MG, 2/D
  5. GLIPIZIDE [Concomitant]
     Dosage: 20 MG, 2/D
  6. WELLBUTRIN [Concomitant]
     Indication: DEPRESSION
  7. PAXIL [Concomitant]
     Indication: DEPRESSION
  8. ENALAPRIL [Concomitant]
     Indication: BLOOD PRESSURE INCREASED
  9. SIMVASTATIN [Concomitant]
     Indication: BLOOD CHOLESTEROL
  10. PLAVIX [Concomitant]
     Indication: CARDIOVASCULAR EVENT PROPHYLAXIS
  11. DYAZIDE [Concomitant]
     Indication: ELECTROLYTE SUBSTITUTION THERAPY

REACTIONS (5)
  - BLOOD TESTOSTERONE DECREASED [None]
  - CHEST PAIN [None]
  - MYOCARDIAL INFARCTION [None]
  - PROSTATE CANCER [None]
  - VOMITING [None]
